FAERS Safety Report 8265347-X (Version None)
Quarter: 2012Q2

REPORT INFORMATION
  Report Type: 
  Country: None (occurrence: None)
  Receive Date: 20120406
  Receipt Date: 20120404
  Transmission Date: 20120825
  Serious: Yes (Hospitalization)
  Sender: FDA-Public Use
  Company Number: US-GILEAD-2012-0052840

PATIENT
  Sex: Female

DRUGS (4)
  1. TYVASO [Concomitant]
  2. ADCIRCA [Concomitant]
  3. LETAIRIS [Suspect]
     Indication: PULMONARY HYPERTENSION
     Dosage: 5 MG, UNK
     Route: 048
     Dates: start: 20101226
  4. LETAIRIS [Suspect]
     Indication: SCLERODERMA

REACTIONS (2)
  - PULMONARY ARTERIAL HYPERTENSION [None]
  - DIZZINESS [None]
